FAERS Safety Report 4687844-6 (Version None)
Quarter: 2005Q2

REPORT INFORMATION
  Report Type: 
  Country: None (occurrence: None)
  Receive Date: 20050607
  Receipt Date: 20050525
  Transmission Date: 20051028
  Serious: Yes (Hospitalization)
  Sender: FDA-Public Use
  Company Number: HQWYE006527MAY05

PATIENT
  Age: 60 Year
  Sex: Male

DRUGS (8)
  1. RAPAMUNE [Suspect]
     Indication: PROPHYLAXIS AGAINST TRANSPLANT REJECTION
     Dosage: ORAL
     Route: 048
     Dates: start: 20040524
  2. FLUVASTATIN (FLUVASTATIN) [Concomitant]
  3. HYDROCHLOROTHIAZIDE [Concomitant]
  4. MAGNESIUM (MAGNESIUM) [Concomitant]
  5. THIAMINE HCL [Concomitant]
  6. ALLOPURINOL [Concomitant]
  7. GLIMEPIRIDE [Concomitant]
  8. MYCOPHENOLATE MOFETIL (MYCOPHENOLATE MOFETIL) [Concomitant]

REACTIONS (3)
  - CONDITION AGGRAVATED [None]
  - HYPERTENSIVE NEPHROPATHY [None]
  - NEPHROSCLEROSIS [None]
